FAERS Safety Report 18013671 (Version 1)
Quarter: 2020Q3

REPORT INFORMATION
  Report Type: Report from Study
  Country: NL (occurrence: NL)
  Receive Date: 20200713
  Receipt Date: 20200713
  Transmission Date: 20201103
  Serious: Yes (Hospitalization, Other)
  Sender: FDA-Public Use
  Company Number: NL-JNJFOC-20200703707

PATIENT

DRUGS (3)
  1. STELARA [Suspect]
     Active Substance: USTEKINUMAB
     Indication: CROHN^S DISEASE
     Dosage: (260 MG { 55 KG, 390 MG BETWEEN 55 KG AND 85 KG, 520 MG } 85 KG).
     Route: 042
  2. STELARA [Suspect]
     Active Substance: USTEKINUMAB
     Dosage: 8?12 WEEKS
     Route: 058
  3. VEDOLIZUMAB [Suspect]
     Active Substance: VEDOLIZUMAB
     Dosage: 300 MG AT WEEK 0, 2 AND 6,

REACTIONS (20)
  - Gastrointestinal infection [Unknown]
  - Skin lesion [Unknown]
  - Respiratory disorder [Unknown]
  - Muscle strain [Unknown]
  - Hypocalcaemia [Unknown]
  - Hypomagnesaemia [Unknown]
  - Headache [Unknown]
  - Adverse event [Unknown]
  - Device related infection [Unknown]
  - Pneumonia [Unknown]
  - Oral herpes [Unknown]
  - Gastrointestinal disorder [Unknown]
  - Arthralgia [Unknown]
  - Infection [Unknown]
  - Urinary tract infection [Unknown]
  - Influenza like illness [Unknown]
  - Drug ineffective [Unknown]
  - Upper respiratory tract infection [Unknown]
  - Angiopathy [Unknown]
  - Soft tissue infection [Unknown]
